FAERS Safety Report 24750927 (Version 1)
Quarter: 2024Q4

REPORT INFORMATION
  Report Type: Report from Study
  Country: DE (occurrence: DE)
  Receive Date: 20241219
  Receipt Date: 20241219
  Transmission Date: 20250114
  Serious: No
  Sender: ROCHE
  Company Number: DE-ML39632-2389822-1

PATIENT
  Age: 40 Year
  Sex: Female
  Weight: 74 kg

DRUGS (39)
  1. OCREVUS [Suspect]
     Active Substance: OCRELIZUMAB
     Indication: Relapsing multiple sclerosis
     Route: 042
     Dates: start: 20190326, end: 20220303
  2. OCREVUS [Suspect]
     Active Substance: OCRELIZUMAB
     Route: 042
     Dates: start: 20180927, end: 20181016
  3. OFATUMUMAB [Suspect]
     Active Substance: OFATUMUMAB
     Indication: Relapsing multiple sclerosis
     Route: 065
     Dates: start: 20221116
  4. JANUVIA [Concomitant]
     Active Substance: SITAGLIPTIN PHOSPHATE
     Indication: Diabetes mellitus
     Dosage: DEFINITION OF THE INTERVAL: AS REQUIRED
     Route: 048
     Dates: start: 201811, end: 202202
  5. JANUVIA [Concomitant]
     Active Substance: SITAGLIPTIN PHOSPHATE
     Route: 048
     Dates: start: 201810, end: 201811
  6. JANUVIA [Concomitant]
     Active Substance: SITAGLIPTIN PHOSPHATE
     Dosage: DEFINITION OF THE INTERVAL: AS REQUIRED
     Route: 048
     Dates: start: 202202
  7. IBUPROFEN [Concomitant]
     Active Substance: IBUPROFEN
     Indication: Pain
     Dosage: DEFINITION OF THE INTERVAL: AS REQUIRED
     Route: 048
     Dates: start: 202102
  8. PNEUMOVAX 23 [Concomitant]
     Active Substance: PNEUMOCOCCAL VACCINE, POLYVALENT 23
     Indication: Immunisation
     Route: 030
     Dates: start: 20180820, end: 20180820
  9. LEVOTHYROXINE SODIUM [Concomitant]
     Active Substance: LEVOTHYROXINE SODIUM
     Indication: Hypothyroidism
     Route: 048
     Dates: start: 202110
  10. LEVOTHYROXINE SODIUM [Concomitant]
     Active Substance: LEVOTHYROXINE SODIUM
     Route: 048
     Dates: start: 2008, end: 20201114
  11. LEVOTHYROXINE SODIUM [Concomitant]
     Active Substance: LEVOTHYROXINE SODIUM
     Route: 048
     Dates: start: 202110
  12. LEVOTHYROXINE SODIUM [Concomitant]
     Active Substance: LEVOTHYROXINE SODIUM
     Route: 048
     Dates: start: 20201115, end: 202110
  13. ESCITALOPRAM [Concomitant]
     Active Substance: ESCITALOPRAM OXALATE
     Indication: Depression
     Route: 048
     Dates: start: 20190105
  14. ESCITALOPRAM [Concomitant]
     Active Substance: ESCITALOPRAM OXALATE
     Route: 048
     Dates: start: 2016, end: 20190104
  15. METHYLPREDNISOLONE [Concomitant]
     Active Substance: METHYLPREDNISOLONE
     Indication: Multiple sclerosis
     Route: 042
     Dates: start: 20180907, end: 20180910
  16. PREGABALIN [Concomitant]
     Active Substance: PREGABALIN
     Indication: Paraesthesia
     Route: 048
     Dates: start: 20190107
  17. PREGABALIN [Concomitant]
     Active Substance: PREGABALIN
     Route: 048
     Dates: end: 20190227
  18. PREGABALIN [Concomitant]
     Active Substance: PREGABALIN
     Route: 048
     Dates: start: 20190228
  19. Comirnaty [Concomitant]
     Indication: COVID-19 immunisation
     Route: 030
     Dates: start: 20210624, end: 20210624
  20. Comirnaty [Concomitant]
     Route: 030
     Dates: start: 20211116, end: 20211116
  21. Comirnaty [Concomitant]
     Route: 030
     Dates: start: 20210611, end: 20210624
  22. FERRO-SANOL DUODENAL [Concomitant]
     Active Substance: FERROUS GLYCINE SULFATE
     Indication: Iron deficiency
     Route: 048
     Dates: start: 20190403, end: 20191030
  23. METFORMIN [Concomitant]
     Active Substance: METFORMIN HYDROCHLORIDE
     Indication: Diabetes mellitus
     Route: 048
     Dates: start: 202012, end: 202112
  24. METFORMIN [Concomitant]
     Active Substance: METFORMIN HYDROCHLORIDE
     Route: 048
     Dates: start: 202002, end: 202012
  25. METFORMIN [Concomitant]
     Active Substance: METFORMIN HYDROCHLORIDE
     Route: 048
     Dates: start: 201810, end: 20190219
  26. METFORMIN [Concomitant]
     Active Substance: METFORMIN HYDROCHLORIDE
     Route: 048
     Dates: start: 201906, end: 202002
  27. METFORMIN [Concomitant]
     Active Substance: METFORMIN HYDROCHLORIDE
     Route: 048
     Dates: start: 20190220, end: 201906
  28. METFORMIN [Concomitant]
     Active Substance: METFORMIN HYDROCHLORIDE
     Dosage: DEFINITION OF THE INTERVAL: AS REQUIRED
     Route: 048
     Dates: start: 202112
  29. DEXKETOPROFEN [Concomitant]
     Active Substance: DEXKETOPROFEN
     Indication: Pain
     Route: 042
     Dates: start: 20210217, end: 20210217
  30. CHOLECALCIFEROL [Concomitant]
     Active Substance: CHOLECALCIFEROL
     Indication: Vitamin D deficiency
     Route: 048
     Dates: start: 201809
  31. METHOCARBAMOL [Concomitant]
     Active Substance: METHOCARBAMOL
     Indication: Pain
     Route: 042
     Dates: start: 20210217, end: 20210217
  32. LEVEMIR [Concomitant]
     Active Substance: INSULIN DETEMIR
     Indication: Diabetes mellitus
     Dosage: DEFINITION OF THE INTERVAL: AS REQUIRED
     Route: 003
     Dates: start: 202102
  33. LEVEMIR [Concomitant]
     Active Substance: INSULIN DETEMIR
     Route: 058
     Dates: start: 201810, end: 201811
  34. NOVALGIN (METAMIZOLE SODIUM) [Concomitant]
     Active Substance: METAMIZOLE SODIUM
     Indication: Pain
     Dosage: DEFINITION OF THE INTERVAL: AS REQUIRED
     Route: 048
     Dates: start: 202102
  35. DEXAHEXAL [DEXAMETHASONE PHOSPHATE] [Concomitant]
     Indication: Pain
     Route: 042
     Dates: start: 20210217, end: 20210217
  36. ZOPICLONE [Concomitant]
     Active Substance: ZOPICLONE
     Indication: Sleep disorder
     Route: 048
     Dates: start: 20210224, end: 20210226
  37. TETAGAM [IMMUNOGLOBULIN ANTI-CLOSTRIDIUM TETANUS TOXIN] [Concomitant]
     Indication: Immunisation
     Route: 030
     Dates: start: 20180905, end: 20180905
  38. ETHINYL ESTRADIOL\LEVONORGESTREL [Concomitant]
     Active Substance: ETHINYL ESTRADIOL\LEVONORGESTREL
     Dosage: DEFINITION OF THE INTERVAL: AS REQUIRED
     Route: 048
     Dates: start: 20210114
  39. METHYLPREDNISOLONE [Concomitant]
     Active Substance: METHYLPREDNISOLONE
     Indication: Multiple sclerosis
     Route: 042
     Dates: start: 20210222, end: 20210226

REACTIONS (1)
  - Clostridium colitis [Not Recovered/Not Resolved]

NARRATIVE: CASE EVENT DATE: 20241201
